FAERS Safety Report 9890049 (Version 1)
Quarter: 2014Q1

REPORT INFORMATION
  Report Type: Spontaneous
  Country: US (occurrence: US)
  Receive Date: 20140212
  Receipt Date: 20140212
  Transmission Date: 20141002
  Serious: No
  Sender: FDA-Public Use
  Company Number: US-BIOGENIDEC-2014BI011020

PATIENT
  Age: 56 Year
  Sex: Female
  Weight: 70 kg

DRUGS (7)
  1. TECFIDERA [Suspect]
     Indication: MULTIPLE SCLEROSIS
     Route: 048
     Dates: start: 201305
  2. ADDERALL [Concomitant]
  3. AMPYRA [Concomitant]
  4. CYANCOBALAMIN [Concomitant]
  5. HYDROCODONE [Concomitant]
  6. PREMARIN [Concomitant]
  7. VIIBRYD [Concomitant]

REACTIONS (2)
  - Gait disturbance [Unknown]
  - Balance disorder [Unknown]
